FAERS Safety Report 23782078 (Version 2)
Quarter: 2024Q2

REPORT INFORMATION
  Report Type: Report from Study
  Country: US (occurrence: US)
  Receive Date: 20240425
  Receipt Date: 20240501
  Transmission Date: 20240715
  Serious: Yes (Other)
  Sender: FDA-Public Use
  Company Number: US-ABBVIE-5692569

PATIENT
  Sex: Female
  Weight: 99.79 kg

DRUGS (11)
  1. HUMIRA [Suspect]
     Active Substance: ADALIMUMAB
     Indication: Crohn^s disease
     Dosage: FORM STRENGTH: 40 MILLIGRAM CITRATE FREE
     Route: 058
     Dates: start: 20240323, end: 202404
  2. HUMIRA [Suspect]
     Active Substance: ADALIMUMAB
     Dosage: STRENGTH 40 MG
     Route: 058
     Dates: start: 20240309
  3. CLARITIN [Concomitant]
     Active Substance: LORATADINE
     Indication: Hypersensitivity
     Dosage: DAILY
     Route: 048
  4. METAMUCIL [Concomitant]
     Active Substance: PLANTAGO SEED
     Indication: Product used for unknown indication
     Route: 048
  5. METAMUCIL [Concomitant]
     Active Substance: PLANTAGO SEED
     Indication: Product used for unknown indication
     Dosage: DAILY
     Route: 048
  6. Phytomulti [Concomitant]
     Indication: Vitamin supplementation
     Dosage: DAILY
     Route: 048
  7. VITAMIN D3 [Concomitant]
     Active Substance: CHOLECALCIFEROL
     Indication: Vitamin supplementation
     Dosage: DAILY
     Route: 048
  8. TYLENOL [Concomitant]
     Active Substance: ACETAMINOPHEN
     Indication: Oral pain
     Dosage: TIME INTERVAL: AS NECESSARY: PRN
     Route: 048
     Dates: start: 20240405, end: 20240416
  9. OLMESARTAN [Concomitant]
     Active Substance: OLMESARTAN
     Indication: Hypertension
     Dosage: DAILY
     Route: 048
  10. MINERALS\VITAMINS [Concomitant]
     Active Substance: MINERALS\VITAMINS
     Indication: Macular degeneration
     Dosage: DAILY
     Route: 048
  11. AUGMENTIN [Concomitant]
     Active Substance: AMOXICILLIN\CLAVULANATE POTASSIUM
     Indication: Oral surgery
     Dosage: 875
     Route: 048
     Dates: start: 20240405, end: 20240416

REACTIONS (13)
  - Tooth extraction [Unknown]
  - Ear congestion [Unknown]
  - Joint swelling [Unknown]
  - Balance disorder [Unknown]
  - Headache [Unknown]
  - Meniere^s disease [Unknown]
  - Back pain [Unknown]
  - Ear disorder [Unknown]
  - Ocular hyperaemia [Unknown]
  - Swelling [Unknown]
  - Pain [Unknown]
  - Ear infection fungal [Unknown]
  - Ear discomfort [Unknown]

NARRATIVE: CASE EVENT DATE: 20240101
